FAERS Safety Report 9129918 (Version 7)
Quarter: 2014Q1

REPORT INFORMATION
  Report Type: Spontaneous
  Country: US (occurrence: US)
  Receive Date: 20130228
  Receipt Date: 20140128
  Transmission Date: 20141002
  Serious: Yes (Hospitalization, Other)
  Sender: FDA-Public Use
  Company Number: US-MERCK-1302USA013042

PATIENT
  Sex: Female

DRUGS (5)
  1. FOSAMAX [Suspect]
     Indication: OSTEOPENIA
     Dosage: 70 MG, QW
     Route: 048
     Dates: start: 2006, end: 201103
  2. FOSAMAX [Suspect]
     Indication: OSTEOPOROSIS
  3. OMEGA-3 MARINE TRIGLYCERIDES [Concomitant]
     Dosage: 1200IU-2000 DF, QD
     Route: 048
     Dates: start: 2000, end: 2009
  4. VITAMIN D (UNSPECIFIED) [Concomitant]
     Dosage: 1.25 MG-1000 IU, QD
     Route: 048
     Dates: start: 2000, end: 2009
  5. ALENDRONATE SODIUM [Suspect]
     Dosage: 70 MG, UNK

REACTIONS (33)
  - Intramedullary rod insertion [Unknown]
  - Femur fracture [Unknown]
  - Intramedullary rod insertion [Unknown]
  - Bone graft [Unknown]
  - Intramedullary rod insertion [Unknown]
  - Spinal fusion surgery [Unknown]
  - Breast cancer [Unknown]
  - Mastectomy [Unknown]
  - Renal failure acute [Recovered/Resolved]
  - Metastasis [Unknown]
  - Femur fracture [Unknown]
  - Radiotherapy [Unknown]
  - Impaired healing [Unknown]
  - Fall [Unknown]
  - Low turnover osteopathy [Unknown]
  - Hypercholesterolaemia [Unknown]
  - Oestrogen deficiency [Unknown]
  - Hypertension [Unknown]
  - Bone disorder [Unknown]
  - Bursitis [Unknown]
  - Chest X-ray abnormal [Unknown]
  - Osteoarthritis [Unknown]
  - Osteitis [Not Recovered/Not Resolved]
  - Tendon calcification [Not Recovered/Not Resolved]
  - Fibula fracture [Unknown]
  - Asthenia [Not Recovered/Not Resolved]
  - Dyspnoea exertional [Unknown]
  - Anaemia [Recovering/Resolving]
  - Hypokalaemia [Unknown]
  - Urinary tract infection [Recovered/Resolved]
  - Restless legs syndrome [Unknown]
  - Depression [Unknown]
  - Gastrooesophageal reflux disease [Unknown]
